FAERS Safety Report 6026070-5 (Version None)
Quarter: 2009Q1

REPORT INFORMATION
  Report Type: 
  Country: None (occurrence: None)
  Receive Date: 20090102
  Receipt Date: 20081219
  Transmission Date: 20090719
  Serious: Yes (Life-Threatening)
  Sender: FDA-Public Use
  Company Number: IT-SANOFI-SYNTHELABO-A06200800730

PATIENT
  Sex: Female

DRUGS (2)
  1. XELODA [Concomitant]
     Indication: DRUG USE FOR UNKNOWN INDICATION
     Route: 048
  2. ELOXATIN [Suspect]
     Indication: COLON CANCER
     Route: 041
     Dates: start: 20081126, end: 20081126

REACTIONS (3)
  - DYSPNOEA [None]
  - LARYNGEAL OEDEMA [None]
  - LARYNGOSPASM [None]
